FAERS Safety Report 20021359 (Version 1)
Quarter: 2021Q4

REPORT INFORMATION
  Report Type: Spontaneous
  Country: AT (occurrence: AT)
  Receive Date: 20211101
  Receipt Date: 20211101
  Transmission Date: 20220303
  Serious: Yes (Death, Other)
  Sender: FDA-Public Use
  Company Number: AT-OTSUKA-2021_037664

PATIENT
  Age: 74 Year
  Sex: Male

DRUGS (4)
  1. DACOGEN [Suspect]
     Active Substance: DECITABINE
     Indication: Product used for unknown indication
     Dosage: UNK
     Route: 065
  2. VENETOCLAX [Suspect]
     Active Substance: VENETOCLAX
     Indication: Acute myeloid leukaemia
     Dosage: INITIAL DOSE: 1-
     Route: 048
     Dates: start: 20190930
  3. VENETOCLAX [Suspect]
     Active Substance: VENETOCLAX
     Dosage: 300MG/DAY (300 MG)
     Route: 048
     Dates: start: 202006
  4. AZACITIDINE [Concomitant]
     Active Substance: AZACITIDINE
     Indication: Acute myeloid leukaemia
     Dosage: UNK
     Route: 065

REACTIONS (4)
  - Death [Fatal]
  - Acute myeloid leukaemia [Not Recovered/Not Resolved]
  - Transfusion [Unknown]
  - Off label use [Unknown]

NARRATIVE: CASE EVENT DATE: 20190930
